FAERS Safety Report 18127088 (Version 1)
Quarter: 2020Q3

REPORT INFORMATION
  Report Type: Spontaneous
  Country: ES (occurrence: ES)
  Receive Date: 20200810
  Receipt Date: 20200810
  Transmission Date: 20201103
  Serious: Yes (Other)
  Sender: FDA-Public Use
  Company Number: ES-UNICHEM PHARMACEUTICALS (USA) INC-UCM202007-000875

PATIENT
  Age: 30 Year
  Sex: Male

DRUGS (2)
  1. DIVALPROEX SODIUM. [Suspect]
     Active Substance: DIVALPROEX SODIUM
     Indication: GENERALISED TONIC-CLONIC SEIZURE
     Dosage: 15 MG PER KG PER DIE
  2. LAMOTRIGINE. [Suspect]
     Active Substance: LAMOTRIGINE
     Indication: GENERALISED TONIC-CLONIC SEIZURE
     Dosage: 3 MG PER KG PER DAY

REACTIONS (2)
  - Tremor [Unknown]
  - Brugada syndrome [Unknown]
